FAERS Safety Report 25897822 (Version 1)
Quarter: 2025Q4

REPORT INFORMATION
  Report Type: Spontaneous
  Country: US (occurrence: US)
  Receive Date: 20251008
  Receipt Date: 20251008
  Transmission Date: 20260118
  Serious: No
  Sender: CALLIDITAS THERAPEUTICS AB
  Company Number: US-Calliditas-2025CAL03061

PATIENT
  Age: 61 Year
  Sex: Male

DRUGS (5)
  1. TARPEYO [Suspect]
     Active Substance: BUDESONIDE
     Indication: Renal transplant
     Route: 048
     Dates: start: 20250523
  2. CELLCEPT [Concomitant]
     Active Substance: MYCOPHENOLATE MOFETIL
  3. COREG [Concomitant]
     Active Substance: CARVEDILOL
  4. LOSARTAN [Concomitant]
     Active Substance: LOSARTAN
  5. TACROLIMUS [Concomitant]
     Active Substance: TACROLIMUS

REACTIONS (3)
  - Product dose omission issue [Recovering/Resolving]
  - Malaise [Recovering/Resolving]
  - Off label use [Unknown]

NARRATIVE: CASE EVENT DATE: 20250923
